FAERS Safety Report 20392143 (Version 2)
Quarter: 2022Q1

REPORT INFORMATION
  Report Type: Spontaneous
  Country: FR (occurrence: FR)
  Receive Date: 20220128
  Receipt Date: 20220327
  Transmission Date: 20220423
  Serious: Yes (Other)
  Sender: FDA-Public Use
  Company Number: FR-JNJFOC-20220153888

PATIENT
  Age: 73 Year
  Sex: Male

DRUGS (1)
  1. YONDELIS [Suspect]
     Active Substance: TRABECTEDIN
     Indication: Undifferentiated sarcoma
     Dosage: 2 CYCLES
     Route: 065
     Dates: start: 20210920

REACTIONS (2)
  - Renal failure [Recovered/Resolved]
  - Oliguria [Unknown]

NARRATIVE: CASE EVENT DATE: 20210920
